FAERS Safety Report 8042328-2 (Version None)
Quarter: 2012Q1

REPORT INFORMATION
  Report Type: 
  Country: None (occurrence: None)
  Receive Date: 20120112
  Receipt Date: 20120110
  Transmission Date: 20120608
  Serious: Yes (Other)
  Sender: FDA-Public Use
  Company Number: DE-ROCHE-1029181

PATIENT
  Age: 12 Year
  Sex: Female

DRUGS (1)
  1. MABTHERA [Suspect]
     Indication: AUTOIMMUNE DISORDER
     Route: 042
     Dates: start: 20111215

REACTIONS (1)
  - PANCYTOPENIA [None]
